FAERS Safety Report 25941274 (Version 1)
Quarter: 2025Q4

REPORT INFORMATION
  Report Type: Spontaneous
  Country: US (occurrence: None)
  Receive Date: 20251019
  Receipt Date: 20251019
  Transmission Date: 20260117
  Serious: Yes (unspecified)
  Sender: FDA-CTU
  Company Number: None

PATIENT
  Age: 56 Year
  Sex: Female
  Weight: 51.75 kg

DRUGS (14)
  1. CIPRO [Suspect]
     Active Substance: CIPROFLOXACIN HYDROCHLORIDE
     Indication: Diverticular perforation
     Dosage: 1 TABLET EVERY 12 HOURS ORAL ?
     Route: 048
     Dates: start: 20250228, end: 20250307
  2. FLAGYL [Suspect]
     Active Substance: METRONIDAZOLE\METRONIDAZOLE HYDROCHLORIDE
  3. MEROPENEM [Suspect]
     Active Substance: MEROPENEM
  4. PROGESTERONE [Concomitant]
     Active Substance: PROGESTERONE
  5. NP THYROID [Concomitant]
     Active Substance: LEVOTHYROXINE\LIOTHYRONINE
  6. Temazepam HRT [Concomitant]
  7. c [Concomitant]
  8. d [Concomitant]
  9. SELENIUM [Concomitant]
     Active Substance: SELENIUM
  10. dim [Concomitant]
  11. MAGNESIUM [Concomitant]
     Active Substance: MAGNESIUM
  12. NAC [Concomitant]
  13. ZINC [Concomitant]
     Active Substance: ZINC
  14. VITAMIN B COMPLEX [Concomitant]
     Active Substance: CYANOCOBALAMIN\DEXPANTHENOL\NIACINAMIDE\PYRIDOXINE HYDROCHLORIDE\RIBOFLAVIN 5^-PHOSPHATE SODIUM\THIA

REACTIONS (13)
  - Nausea [None]
  - Rash [None]
  - Headache [None]
  - Neuropathy peripheral [None]
  - Hypoaesthesia [None]
  - Limb discomfort [None]
  - Malaise [None]
  - Brain fog [None]
  - Limb discomfort [None]
  - Muscular weakness [None]
  - Temperature regulation disorder [None]
  - Eye disorder [None]
  - Anxiety [None]

NARRATIVE: CASE EVENT DATE: 20251011
